FAERS Safety Report 7948240-9 (Version None)
Quarter: 2011Q4

REPORT INFORMATION
  Report Type: 
  Country: None (occurrence: None)
  Receive Date: 20111125
  Receipt Date: 20111115
  Transmission Date: 20120403
  Serious: Yes (Disabling)
  Sender: FDA-Public Use
  Company Number: 2011P1010620

PATIENT
  Sex: Female

DRUGS (1)
  1. FENTANYL-75 [Suspect]

REACTIONS (1)
  - SPINAL CORD INJURY [None]
